FAERS Safety Report 7141254-0 (Version None)
Quarter: 2010Q4

REPORT INFORMATION
  Report Type: 
  Country: None (occurrence: None)
  Receive Date: 20101207
  Receipt Date: 20101122
  Transmission Date: 20110411
  Serious: Yes (Other)
  Sender: FDA-Public Use
  Company Number: JP-PFIZER INC-2010163912

PATIENT
  Age: 89 Year
  Sex: Female

DRUGS (2)
  1. CELECOX [Suspect]
     Dosage: 200MG, UNKNOWN/D
     Route: 048
     Dates: start: 20100926, end: 20101120
  2. CRAVIT [Suspect]
     Indication: ENTEROCOLITIS INFECTIOUS
     Dosage: 500 MG, UNKNOWNLD
     Route: 048
     Dates: start: 20101116, end: 20101120

REACTIONS (3)
  - CONFUSIONAL STATE [None]
  - CONVULSION [None]
  - HALLUCINATION, AUDITORY [None]
